FAERS Safety Report 9279180 (Version 1)
Quarter: 2013Q2

REPORT INFORMATION
  Report Type: Spontaneous
  Country: US (occurrence: US)
  Receive Date: 20130508
  Receipt Date: 20130508
  Transmission Date: 20140414
  Serious: No
  Sender: FDA-Public Use
  Company Number: US-ASTRAZENECA-2013SE26922

PATIENT
  Age: 79 Year
  Sex: Female
  Weight: 46.7 kg

DRUGS (3)
  1. NEXIUM [Suspect]
     Indication: COUGH
     Route: 048
     Dates: start: 2002, end: 2003
  2. PRILOSEC OTC [Suspect]
     Indication: DYSPEPSIA
     Route: 048
  3. DOXYCYCLINE [Concomitant]
     Indication: ROSACEA

REACTIONS (8)
  - Cough [Unknown]
  - Dysphonia [Unknown]
  - Rash [Not Recovered/Not Resolved]
  - Rhinitis [Unknown]
  - Rosacea [Unknown]
  - Body height decreased [Unknown]
  - Drug ineffective [Unknown]
  - Intentional drug misuse [Recovering/Resolving]
